FAERS Safety Report 9051011 (Version 1)
Quarter: 2013Q1

REPORT INFORMATION
  Report Type: Spontaneous
  Country: US (occurrence: US)
  Receive Date: 20130205
  Receipt Date: 20130205
  Transmission Date: 20140127
  Serious: Yes (Hospitalization)
  Sender: FDA-Public Use
  Company Number: US-INCYTE CORPORATION-2012IN001747

PATIENT
  Sex: 0

DRUGS (3)
  1. JAKAFI [Suspect]
     Indication: MYELOFIBROSIS
     Dosage: 15 MG, BID
     Route: 048
     Dates: start: 20120523, end: 20120928
  2. JAKAFI [Suspect]
     Dosage: 15 MG, BID
     Route: 048
     Dates: start: 201210
  3. ACYCLOVIR [Concomitant]

REACTIONS (13)
  - Anaemia [Recovered/Resolved]
  - Neutropenia [Recovering/Resolving]
  - Loss of consciousness [Recovered/Resolved]
  - Lymphadenopathy [Unknown]
  - Hypoacusis [Unknown]
  - Oral herpes [Unknown]
  - Abdominal discomfort [Unknown]
  - Pruritus [Unknown]
  - Headache [Unknown]
  - Dizziness [Unknown]
  - Asthenia [Unknown]
  - Pallor [Unknown]
  - Somnolence [Unknown]
